FAERS Safety Report 25236690 (Version 1)
Quarter: 2025Q2

REPORT INFORMATION
  Report Type: Spontaneous
  Country: IT (occurrence: IT)
  Receive Date: 20250424
  Receipt Date: 20250424
  Transmission Date: 20250716
  Serious: Yes (Other)
  Sender: PIERRE FABRE MEDICAMENT
  Company Number: IT-PFM-2025-01885

PATIENT
  Sex: Female
  Weight: 3.26 kg

DRUGS (2)
  1. PROPRANOLOL [Suspect]
     Active Substance: PROPRANOLOL HYDROCHLORIDE
     Indication: Haemangioma
  2. METHYLPREDNISOLONE [Suspect]
     Active Substance: METHYLPREDNISOLONE
     Indication: Haemangioma
     Route: 065

REACTIONS (4)
  - Normocytic anaemia [Unknown]
  - Thrombocytopenia [Unknown]
  - Product administered to patient of inappropriate age [Unknown]
  - Off label use [Unknown]
